FAERS Safety Report 5466839-9 (Version None)
Quarter: 2007Q3

REPORT INFORMATION
  Report Type: 
  Country: None (occurrence: None)
  Receive Date: 20070925
  Receipt Date: 20070917
  Transmission Date: 20080115
  Serious: Yes (Hospitalization)
  Sender: FDA-Public Use
  Company Number: PHHO2007AT05621

PATIENT
  Age: 63 Year
  Sex: Male
  Weight: 83.4 kg

DRUGS (2)
  1. RAD001 [Suspect]
     Indication: LIVER TRANSPLANT
     Dosage: NO TREATMENT
  2. NEORAL [Suspect]
     Indication: LIVER TRANSPLANT
     Dates: start: 20070215

REACTIONS (5)
  - ARRHYTHMIA [None]
  - ATRIOVENTRICULAR BLOCK [None]
  - EPILEPSY [None]
  - LOSS OF CONSCIOUSNESS [None]
  - TACHYCARDIA [None]
